FAERS Safety Report 4800615-2 (Version None)
Quarter: 2005Q4

REPORT INFORMATION
  Report Type: 
  Country: None (occurrence: None)
  Receive Date: 20051017
  Receipt Date: 20051004
  Transmission Date: 20060501
  Serious: Yes (Disabling)
  Sender: FDA-Public Use
  Company Number: US-MERCK-0510USA03592

PATIENT
  Age: 58 Year
  Sex: Female

DRUGS (1)
  1. VIOXX [Suspect]
     Route: 048
     Dates: start: 20000101, end: 20010309

REACTIONS (4)
  - EMOTIONAL DISTRESS [None]
  - INJURY [None]
  - ISCHAEMIC STROKE [None]
  - PAIN [None]
